FAERS Safety Report 5908824-6 (Version None)
Quarter: 2008Q4

REPORT INFORMATION
  Report Type: 
  Country: None (occurrence: None)
  Receive Date: 20081006
  Receipt Date: 20081001
  Transmission Date: 20090506
  Serious: Yes (Hospitalization)
  Sender: FDA-Public Use
  Company Number: US-ASTRAZENECA-2008UW21538

PATIENT
  Sex: Male

DRUGS (1)
  1. SEROQUEL [Suspect]
     Dosage: OVERDOSED ON A MASSIVE AMOUNT OF SEROQUEL ONE MONTH AGO
     Route: 048

REACTIONS (5)
  - CLOSTRIDIAL INFECTION [None]
  - INTENTIONAL OVERDOSE [None]
  - NAUSEA [None]
  - PNEUMONIA ASPIRATION [None]
  - PULMONARY EMBOLISM [None]
